FAERS Safety Report 6053953-2 (Version None)
Quarter: 2009Q1

REPORT INFORMATION
  Report Type: 
  Country: None (occurrence: None)
  Receive Date: 20090127
  Receipt Date: 20090116
  Transmission Date: 20090719
  Serious: Yes (Other)
  Sender: FDA-Public Use
  Company Number: US-ROCHE-609042

PATIENT
  Sex: Male

DRUGS (4)
  1. PEG-INTERFERON A-2A (RO 25-8310) [Suspect]
     Indication: HEPATITIS C
     Dosage: TEMPORARILY STOPPED, FORM: PFS
     Route: 065
     Dates: start: 20081130
  2. PEG-INTERFERON A-2A (RO 25-8310) [Suspect]
     Dosage: FORM: PFS
     Route: 065
     Dates: start: 20090102
  3. RIBAVIRIN [Suspect]
     Indication: HEPATITIS C
     Route: 065
     Dates: start: 20081130
  4. RIBAVIRIN [Suspect]
     Route: 065
     Dates: start: 20090102

REACTIONS (3)
  - APPENDICECTOMY [None]
  - FATIGUE [None]
  - PAIN [None]
